FAERS Safety Report 9639942 (Version 1)
Quarter: 2013Q4

REPORT INFORMATION
  Report Type: Spontaneous
  Country: US (occurrence: US)
  Receive Date: 20131023
  Receipt Date: 20131023
  Transmission Date: 20140711
  Serious: No
  Sender: FDA-Public Use
  Company Number: US-MYLANLABS-2013S1016712

PATIENT
  Age: 73 Year
  Sex: Female
  Weight: 58.97 kg

DRUGS (2)
  1. CARBIDOPA AND LEVODOPA TABLETS USP [Suspect]
     Indication: PARKINSON^S DISEASE
     Route: 048
     Dates: start: 20130716
  2. LEVOTHYROXINE [Concomitant]
     Indication: HYPOTHYROIDISM
     Route: 048
     Dates: start: 1972

REACTIONS (2)
  - Drug effect decreased [Not Recovered/Not Resolved]
  - Tremor [Not Recovered/Not Resolved]
